FAERS Safety Report 4897614-1 (Version None)
Quarter: 2006Q1

REPORT INFORMATION
  Report Type: 
  Country: None (occurrence: None)
  Receive Date: 20060201
  Receipt Date: 20060124
  Transmission Date: 20060701
  Serious: Yes (Other)
  Sender: FDA-Public Use
  Company Number: CA-JNJFOC-20060104695

PATIENT
  Sex: Female
  Weight: 78.02 kg

DRUGS (10)
  1. DURAGESIC-100 [Suspect]
     Indication: PAIN
     Route: 062
  2. GLUCOSAMINE [Concomitant]
     Indication: OSTEOARTHRITIS
  3. VALIUM [Concomitant]
     Indication: SLEEP DISORDER
     Dosage: INITIATED OVER 40 YEARS AGO.
  4. PERCODAN [Concomitant]
  5. PERCODAN [Concomitant]
  6. PERCODAN [Concomitant]
  7. PERCODAN [Concomitant]
  8. PERCODAN [Concomitant]
  9. PERCODAN [Concomitant]
     Indication: PAIN
  10. SPIRIVA [Concomitant]
     Indication: ASTHMA

REACTIONS (6)
  - ASTHMA [None]
  - CARDIAC ARREST [None]
  - CELLULITIS [None]
  - FALL [None]
  - FOOT FRACTURE [None]
  - LARYNGOSPASM [None]
